FAERS Safety Report 5336848-9 (Version None)
Quarter: 2007Q2

REPORT INFORMATION
  Report Type: 
  Country: None (occurrence: None)
  Receive Date: 20070529
  Receipt Date: 20070518
  Transmission Date: 20071010
  Serious: Yes (Death, Hospitalization)
  Sender: FDA-Public Use
  Company Number: US-JNJFOC-20060103328

PATIENT
  Sex: Female
  Weight: 93.44 kg

DRUGS (25)
  1. INFLIXIMAB [Suspect]
     Route: 042
     Dates: start: 20010316
  2. INFLIXIMAB [Suspect]
     Route: 042
     Dates: start: 20010316
  3. INFLIXIMAB [Suspect]
     Route: 042
     Dates: start: 20010316
  4. INFLIXIMAB [Suspect]
     Route: 042
     Dates: start: 20010316
  5. INFLIXIMAB [Suspect]
     Route: 042
     Dates: start: 20010316
  6. INFLIXIMAB [Suspect]
     Route: 042
     Dates: start: 20010316
  7. INFLIXIMAB [Suspect]
     Route: 042
     Dates: start: 20010316
  8. INFLIXIMAB [Suspect]
     Route: 042
     Dates: start: 20010316
  9. INFLIXIMAB [Suspect]
     Route: 042
     Dates: start: 20010316
  10. INFLIXIMAB [Suspect]
     Route: 042
     Dates: start: 20010316
  11. INFLIXIMAB [Suspect]
     Route: 042
     Dates: start: 20010316
  12. INFLIXIMAB [Suspect]
     Route: 042
     Dates: start: 20010316
  13. INFLIXIMAB [Suspect]
     Route: 042
     Dates: start: 20010316
  14. INFLIXIMAB [Suspect]
     Route: 042
     Dates: start: 20010316
  15. INFLIXIMAB [Suspect]
     Route: 042
     Dates: start: 20010316
  16. INFLIXIMAB [Suspect]
     Route: 042
     Dates: start: 20010316
  17. INFLIXIMAB [Suspect]
     Route: 042
     Dates: start: 20010316
  18. INFLIXIMAB [Suspect]
     Route: 042
     Dates: start: 20010316
  19. INFLIXIMAB [Suspect]
     Route: 042
     Dates: start: 20010316
  20. INFLIXIMAB [Suspect]
     Route: 042
     Dates: start: 20010316
  21. INFLIXIMAB [Suspect]
     Route: 042
     Dates: start: 20010316
  22. INFLIXIMAB [Suspect]
     Route: 042
     Dates: start: 20010316
  23. INFLIXIMAB [Suspect]
     Indication: CROHN'S DISEASE
     Route: 042
     Dates: start: 20010316
  24. MESALAMINE [Concomitant]
     Indication: CROHN'S DISEASE
  25. AZATHIOPRINE [Concomitant]
     Indication: CROHN'S DISEASE

REACTIONS (1)
  - MALIGNANT NEOPLASM OF ISLETS OF LANGERHANS [None]
